FAERS Safety Report 6180188-5 (Version None)
Quarter: 2009Q2

REPORT INFORMATION
  Report Type: 
  Country: None (occurrence: None)
  Receive Date: 20090501
  Receipt Date: 20090423
  Transmission Date: 20091009
  Serious: Yes (Other)
  Sender: FDA-Public Use
  Company Number: 192830ISR

PATIENT
  Age: 66 Year
  Sex: Male

DRUGS (2)
  1. WARFARIN SODIUM [Suspect]
     Indication: THROMBOSIS PROPHYLAXIS
     Dosage: ORAL
     Route: 048
     Dates: start: 20081008, end: 20090414
  2. ERLOTINIB [Suspect]
     Indication: NON-SMALL CELL LUNG CANCER METASTATIC
     Dosage: 150 MG (150 MG, 1 IN 1 D)
     Dates: start: 20090326

REACTIONS (2)
  - DRUG INTERACTION [None]
  - INTERNATIONAL NORMALISED RATIO INCREASED [None]
